FAERS Safety Report 13028574 (Version 1)
Quarter: 2016Q4

REPORT INFORMATION
  Report Type: Spontaneous
  Country: US (occurrence: US)
  Receive Date: 20161214
  Receipt Date: 20161214
  Transmission Date: 20170207
  Serious: Yes (Other)
  Sender: FDA-Public Use
  Company Number: US-MYLANLABS-2016M1055218

PATIENT

DRUGS (6)
  1. EPINEPHRINE. [Suspect]
     Active Substance: EPINEPHRINE
     Indication: ANAESTHESIA
     Dosage: 5 MICROG/KG
     Route: 065
  2. ROPIVACAINE [Suspect]
     Active Substance: ROPIVACAINE
     Indication: ANAESTHESIA
     Dosage: 0.2% ROPIVACAINE INFUSION AT A RATE OF 8 ML/HR
     Route: 050
  3. KETOROLAC [Concomitant]
     Active Substance: KETOROLAC\KETOROLAC TROMETHAMINE
     Indication: PRODUCT USED FOR UNKNOWN INDICATION
     Dosage: 30 MG
     Route: 065
  4. MEPIVACAINE [Suspect]
     Active Substance: MEPIVACAINE\MEPIVACAINE HYDROCHLORIDE
     Indication: ANAESTHESIA
     Dosage: 50 MG OF 2% MEPIVACAINE
  5. BUPIVACAINE. [Suspect]
     Active Substance: BUPIVACAINE
     Indication: ANAESTHESIA
     Dosage: 20ML OF 0.25% BUPIVACAINE
     Route: 065
  6. MORPHINE [Concomitant]
     Active Substance: MORPHINE
     Indication: PRODUCT USED FOR UNKNOWN INDICATION
     Dosage: 10 MG
     Route: 065

REACTIONS (1)
  - Myositis [Recovering/Resolving]
